FAERS Safety Report 9865270 (Version 1)
Quarter: 2014Q1

REPORT INFORMATION
  Report Type: Spontaneous
  Country: US (occurrence: US)
  Receive Date: 20140203
  Receipt Date: 20140203
  Transmission Date: 20141002
  Serious: No
  Sender: FDA-Public Use
  Company Number: US-ALLERGAN-1300136US

PATIENT
  Age: 51 Year
  Sex: Female

DRUGS (3)
  1. RESTASIS [Suspect]
     Indication: DRY EYE
     Dosage: 2 GTT, BID
     Route: 047
     Dates: start: 201207, end: 201209
  2. DOXYCLINE                          /00055701/ [Concomitant]
     Indication: CONJUNCTIVITIS
     Dosage: 50 MG, QD
     Route: 048
  3. STEROID INJECTIONS [Concomitant]
     Indication: HYPERSENSITIVITY
     Dosage: UNK UNK, PRN

REACTIONS (1)
  - Vision blurred [Recovered/Resolved]
